FAERS Safety Report 24917432 (Version 1)
Quarter: 2025Q1

REPORT INFORMATION
  Report Type: Spontaneous
  Country: US (occurrence: US)
  Receive Date: 20250203
  Receipt Date: 20250203
  Transmission Date: 20250408
  Serious: No
  Sender: LUNDBECK
  Company Number: US-LUNDBECK-DKLU4009401

PATIENT

DRUGS (1)
  1. NORTHERA [Suspect]
     Active Substance: DROXIDOPA
     Indication: Autonomic nervous system imbalance
     Route: 048

REACTIONS (1)
  - Prescribed overdose [Not Recovered/Not Resolved]
